FAERS Safety Report 10929799 (Version 2)
Quarter: 2015Q3

REPORT INFORMATION
  Report Type: Spontaneous
  Country: US (occurrence: US)
  Receive Date: 20150319
  Receipt Date: 20150831
  Transmission Date: 20151125
  Serious: Yes (Death, Other)
  Sender: FDA-Public Use
  Company Number: US-ELI_LILLY_AND_COMPANY-US201503005149

PATIENT
  Age: 66 Year
  Sex: Male

DRUGS (2)
  1. CYRAMZA [Suspect]
     Active Substance: RAMUCIRUMAB
     Indication: OESOPHAGEAL ADENOCARCINOMA
     Dosage: UNK, UNKNOWN
     Route: 042
     Dates: start: 20140529, end: 20140826
  2. CYRAMZA [Suspect]
     Active Substance: RAMUCIRUMAB

REACTIONS (6)
  - Pleural effusion [Unknown]
  - Arteriosclerosis coronary artery [Unknown]
  - Tumour haemorrhage [Fatal]
  - Malignant neoplasm progression [Unknown]
  - Atelectasis [Unknown]
  - Localised oedema [Unknown]

NARRATIVE: CASE EVENT DATE: 20141020
